FAERS Safety Report 11531789 (Version 1)
Quarter: 2015Q3

REPORT INFORMATION
  Report Type: Report from Study
  Country: FR (occurrence: FR)
  Receive Date: 20150921
  Receipt Date: 20150921
  Transmission Date: 20151125
  Serious: Yes (Hospitalization)
  Sender: FDA-Public Use
  Company Number: FR-BAYER-2015-389660

PATIENT
  Age: 69 Year
  Sex: Female
  Weight: 63.5 kg

DRUGS (1)
  1. SORAFENIB (RAF KINASE INHIBITOR) [Suspect]
     Active Substance: SORAFENIB
     Indication: ADENOCARCINOMA OF COLON
     Dosage: 800 MG, QD
     Route: 048
     Dates: start: 20150605, end: 20150722

REACTIONS (3)
  - Abdominal pain [Recovering/Resolving]
  - General physical health deterioration [Recovering/Resolving]
  - Asthenia [Recovering/Resolving]

NARRATIVE: CASE EVENT DATE: 20150722
